FAERS Safety Report 5007052-9 (Version None)
Quarter: 2006Q1

REPORT INFORMATION
  Report Type: 
  Country: None (occurrence: None)
  Receive Date: 20060320
  Receipt Date: 20050811
  Transmission Date: 20060701
  Serious: Yes (Other)
  Sender: FDA-Public Use
  Company Number: 2005-08-1088

PATIENT
  Age: 45 Year
  Sex: Male

DRUGS (3)
  1. PEG-INTRON [Suspect]
     Indication: HEPATITIS C
     Dosage: 150 MCG QWK
     Dates: start: 20050328
  2. PEG-INTRON [Suspect]
     Indication: HEPATITIS C
     Dosage: 150 MCG WK SUBCUTANEOUS
     Route: 058
     Dates: start: 20050103, end: 20050321
  3. RIBAVIRIN [Suspect]
     Indication: HEPATITIS C
     Dosage: 600 MG BID ORAL
     Route: 048
     Dates: start: 20050103

REACTIONS (8)
  - DRY SKIN [None]
  - HEPATIC ENZYME INCREASED [None]
  - INJECTION SITE REACTION [None]
  - INSOMNIA [None]
  - PHOTOSENSITIVITY REACTION [None]
  - RASH ERYTHEMATOUS [None]
  - RASH MACULO-PAPULAR [None]
  - REFLUX OESOPHAGITIS [None]
